FAERS Safety Report 26168257 (Version 1)
Quarter: 2025Q4

REPORT INFORMATION
  Report Type: Report from Study
  Country: US (occurrence: US)
  Receive Date: 20251217
  Receipt Date: 20251217
  Transmission Date: 20260117
  Serious: Yes (Hospitalization)
  Sender: ABBVIE
  Company Number: US-ABBVIE-6592001

PATIENT
  Age: 67 Year
  Sex: Female
  Weight: 86 kg

DRUGS (2)
  1. RESTASIS [Suspect]
     Active Substance: CYCLOSPORINE
     Indication: Dry eye
     Dosage: FORM STRENGTH: 0.5 PERCENT.?FREQUENCY TEXT: 1 DROP OF BOTH EYES 2-4 TIMES A DAY
     Route: 047
  2. RESTASIS [Suspect]
     Active Substance: CYCLOSPORINE
     Dosage: FORM STRENGTH: 0.5 PERCENT.?FREQUENCY TEXT: 1 DROP OF BOTH EYES 2-4 TIMES A DAY
     Route: 047

REACTIONS (2)
  - Cerebrovascular accident [Recovering/Resolving]
  - Asthenia [Recovering/Resolving]

NARRATIVE: CASE EVENT DATE: 20251107
